FAERS Safety Report 18515472 (Version 1)
Quarter: 2020Q4

REPORT INFORMATION
  Report Type: Spontaneous
  Country: MX (occurrence: MX)
  Receive Date: 20201118
  Receipt Date: 20201118
  Transmission Date: 20210114
  Serious: Yes (Other)
  Sender: FDA-Public Use
  Company Number: MX-TEVA-2020-MX-1850568

PATIENT
  Sex: Male

DRUGS (1)
  1. PLEXODA [Suspect]
     Active Substance: CAPECITABINE
     Indication: COLON CANCER
     Route: 065

REACTIONS (3)
  - Chills [Unknown]
  - Delirium [Unknown]
  - Feeling cold [Unknown]
